FAERS Safety Report 13270420 (Version 1)
Quarter: 2017Q1

REPORT INFORMATION
  Report Type: Report from Study
  Country: US (occurrence: US)
  Receive Date: 20170224
  Receipt Date: 20170224
  Transmission Date: 20170428
  Serious: Yes (Hospitalization)
  Sender: FDA-Public Use
  Company Number: US-ACTELION-A-US2014-107061

PATIENT
  Age: 58 Year
  Sex: Female
  Weight: 87.75 kg

DRUGS (5)
  1. VELETRI [Suspect]
     Active Substance: EPOPROSTENOL
     Dosage: UNK
     Route: 042
  2. REVATIO [Concomitant]
     Active Substance: SILDENAFIL CITRATE
     Dosage: 20 MG, UNK
     Dates: start: 20141016
  3. LETAIRIS [Concomitant]
     Active Substance: AMBRISENTAN
     Dosage: 10 MG, UNK
     Dates: start: 20141016
  4. OXYGEN. [Concomitant]
     Active Substance: OXYGEN
     Dosage: 2-3 L/MIN CONT + 4-10 L/MIN WITH EXERT
     Dates: start: 20141016
  5. VELETRI [Suspect]
     Active Substance: EPOPROSTENOL
     Indication: PULMONARY ARTERIAL HYPERTENSION
     Dosage: 16 NG/KG, PER MIN
     Route: 042
     Dates: start: 20141006

REACTIONS (6)
  - Nausea [Unknown]
  - Headache [Unknown]
  - Pain in extremity [Unknown]
  - Biopsy lung [Unknown]
  - Oxygen consumption increased [Unknown]
  - Fatigue [Unknown]

NARRATIVE: CASE EVENT DATE: 20170213
